FAERS Safety Report 9996336 (Version 1)
Quarter: 2014Q1

REPORT INFORMATION
  Report Type: Spontaneous
  Country: US (occurrence: None)
  Receive Date: 20140310
  Receipt Date: 20140310
  Transmission Date: 20141002
  Serious: No
  Sender: FDA-Public Use
  Company Number: None

PATIENT
  Age: 63 Year
  Sex: Male
  Weight: 97.98 kg

DRUGS (1)
  1. FLUTICASONE [Suspect]
     Indication: NASAL INFLAMMATION
     Dosage: 2 SQUIRTS IN EACH NOSTRIL ONCE  DAILY IN NOSE
     Dates: start: 20140221, end: 20140227

REACTIONS (1)
  - Urticaria [None]
